FAERS Safety Report 20756978 (Version 3)
Quarter: 2022Q4

REPORT INFORMATION
  Report Type: Report from Study
  Country: US (occurrence: US)
  Receive Date: 20220427
  Receipt Date: 20221012
  Transmission Date: 20230113
  Serious: No
  Sender: FDA-Public Use
  Company Number: US-NOVARTISTESTPH-NVSC2022US097427

PATIENT
  Sex: Male

DRUGS (1)
  1. ENTRESTO [Suspect]
     Active Substance: SACUBITRIL\VALSARTAN
     Indication: Product used for unknown indication
     Dosage: 1 DOSAGE FORM, BID
     Route: 048
     Dates: start: 202204

REACTIONS (6)
  - Orthopnoea [Unknown]
  - Vision blurred [Unknown]
  - Dysphonia [Unknown]
  - Dyspnoea [Unknown]
  - Insomnia [Unknown]
  - Hypotension [Not Recovered/Not Resolved]
